FAERS Safety Report 6905701-9 (Version None)
Quarter: 2010Q3

REPORT INFORMATION
  Report Type: 
  Country: None (occurrence: None)
  Receive Date: 20100804
  Receipt Date: 20100727
  Transmission Date: 20110219
  Serious: Yes (Death, Hospitalization)
  Sender: FDA-Public Use
  Company Number: US-BAYER-201024985NA

PATIENT
  Age: 57 Year
  Sex: Female
  Weight: 75 kg

DRUGS (23)
  1. SORAFENIB [Suspect]
     Indication: HEPATIC NEOPLASM MALIGNANT
     Dosage: TOTAL DAILY DOSE: 800 MG  UNIT DOSE: 200 MG
     Route: 048
     Dates: start: 20100517, end: 20100607
  2. ERLOTINIB OR PLACEBO [Suspect]
     Indication: HEPATIC NEOPLASM MALIGNANT
     Dosage: TOTAL DAILY DOSE: 150 MG
     Route: 048
     Dates: start: 20100517, end: 20100607
  3. TRIAMTERENE AND HYDROCHLOROTHIAZIDE [Concomitant]
     Indication: HYPERTENSION
     Dosage: AS USED: 37.5/25 MG
     Route: 048
     Dates: start: 20100513, end: 20100601
  4. BUPROPION HYDROCHLORIDE [Concomitant]
     Indication: EX-TOBACCO USER
     Dosage: TOTAL DAILY DOSE: 300 MG
     Route: 048
     Dates: start: 20100513, end: 20100601
  5. TOPROL-XL [Concomitant]
     Indication: HYPERTENSION
     Dosage: TOTAL DAILY DOSE: 50 MG
     Route: 048
     Dates: start: 20100324, end: 20100101
  6. OXYCODONE [Concomitant]
     Indication: CANCER PAIN
     Dosage: TOTAL DAILY DOSE: 30 MG
     Route: 048
     Dates: start: 20100513
  7. OXYCODONE [Concomitant]
     Dates: start: 20100417, end: 20100601
  8. OXYCODONE [Concomitant]
     Dosage: EVERY 6 HOURS
     Route: 048
  9. OXYCODONE [Concomitant]
     Dosage: TOTAL DAILY DOSE: 2.5 MG
     Route: 048
  10. OXYCODONE [Concomitant]
     Dosage: EVERY 2 HOURS AS NEEDED FOR PAIN
     Route: 048
  11. COMPAZINE [Concomitant]
     Indication: NAUSEA
     Dosage: EVERY MORNING AS NEED FOR NAUSEA (PT ONLY WISHES TO TAKE HALF A TABLET)
     Route: 048
  12. COMPAZINE [Concomitant]
     Dosage: TOTAL DAILY DOSE: 30 MG
     Route: 048
     Dates: start: 20100414, end: 20100601
  13. COUMADIN [Concomitant]
     Indication: PULMONARY EMBOLISM
     Dosage: TOTAL DAILY DOSE: 2.5 MG
     Route: 048
     Dates: start: 20100513, end: 20100101
  14. IBUPROFEN (ADVIL) [Concomitant]
     Indication: PAIN
     Dosage: 2 TABS
     Route: 048
     Dates: start: 20100608, end: 20100601
  15. PANTOPRAZOLE [Concomitant]
     Dosage: TOTAL DAILY DOSE: 40 MG
     Route: 040
  16. PHYTONADIONE [Concomitant]
     Dosage: TOTAL DAILY DOSE: 1 MG
     Route: 042
  17. POTASSIUM CHLORIDE [Concomitant]
     Dosage: TOTAL DAILY DOSE: 40 MEQ
     Route: 042
  18. LACTULOSE [Concomitant]
     Dosage: TOTAL DAILY DOSE: 20 G
     Route: 048
  19. LACTULOSE [Concomitant]
  20. ONDANSETRON [Concomitant]
     Indication: NAUSEA
     Route: 042
  21. RIFAXIMIN [Concomitant]
     Dosage: TOTAL DAILY DOSE: 1200 MG
     Route: 048
  22. PROCHLORPERAZINE [Concomitant]
     Dosage: Q6H
     Route: 042
  23. ENOXAPARIN SODIUM [Concomitant]
     Indication: PULMONARY EMBOLISM
     Route: 058
     Dates: start: 20100513, end: 20100101

REACTIONS (1)
  - HEPATIC FAILURE [None]
